FAERS Safety Report 7343428-2 (Version None)
Quarter: 2011Q1

REPORT INFORMATION
  Report Type: 
  Country: None (occurrence: None)
  Receive Date: 20110310
  Receipt Date: 20110223
  Transmission Date: 20110831
  Serious: Yes (Hospitalization, Other)
  Sender: FDA-Public Use
  Company Number: US-BAYER-201025151NA

PATIENT
  Sex: Female

DRUGS (10)
  1. UNCODEABLE ^UNCLASSIFIABLE^ [Concomitant]
  2. OCELLA [Suspect]
     Indication: PRODUCT USED FOR UNKNOWN INDICATION
  3. IBUPROFEN [Concomitant]
  4. ELAVIL [Concomitant]
     Indication: PAIN
     Dosage: 25 MG, UNK
     Route: 048
     Dates: start: 20010327
  5. PREMARIN [Concomitant]
  6. UNCODEABLE ^UNCLASSIFIABLE^ [Concomitant]
  7. YASMIN [Suspect]
     Indication: PRODUCT USED FOR UNKNOWN INDICATION
     Dosage: UNK
     Dates: start: 20020702, end: 20020816
  8. UNCODEABLE ^UNCLASSIFIABLE^ [Concomitant]
     Indication: UNEVALUABLE EVENT
     Dosage: UNK
     Dates: start: 20010327
  9. OMNICEF [Concomitant]
  10. YAZ [Suspect]
     Indication: PRODUCT USED FOR UNKNOWN INDICATION

REACTIONS (8)
  - OEDEMA PERIPHERAL [None]
  - DYSPNOEA [None]
  - DEEP VEIN THROMBOSIS [None]
  - CHEST PAIN [None]
  - PULMONARY EMBOLISM [None]
  - ATELECTASIS [None]
  - PAIN IN EXTREMITY [None]
  - PLEURAL EFFUSION [None]
